FAERS Safety Report 5896770-6 (Version None)
Quarter: 2008Q3

REPORT INFORMATION
  Report Type: 
  Country: None (occurrence: None)
  Receive Date: 20080924
  Receipt Date: 20071105
  Transmission Date: 20090109
  Serious: Yes (Other)
  Sender: FDA-Public Use
  Company Number: US-ASTRAZENECA-2007UW25682

PATIENT
  Age: 56 Year
  Sex: Male
  Weight: 188.2 kg

DRUGS (6)
  1. SEROQUEL [Suspect]
     Indication: INSOMNIA
     Route: 048
  2. SEROQUEL [Suspect]
     Route: 048
     Dates: end: 20071103
  3. SERZONE [Concomitant]
  4. ATIVAN [Concomitant]
  5. RESTASIS [Concomitant]
  6. TIAZAC [Concomitant]

REACTIONS (4)
  - DIZZINESS [None]
  - HALLUCINATION [None]
  - SOMNOLENCE [None]
  - SUICIDAL BEHAVIOUR [None]
